FAERS Safety Report 4993977-7 (Version None)
Quarter: 2006Q2

REPORT INFORMATION
  Report Type: 
  Country: None (occurrence: None)
  Receive Date: 20060505
  Receipt Date: 20060426
  Transmission Date: 20061013
  Serious: Yes (Hospitalization)
  Sender: FDA-Public Use
  Company Number: FR-GLAXOSMITHKLINE-B0422154A

PATIENT
  Age: 77 Year
  Sex: Female
  Weight: 65 kg

DRUGS (9)
  1. ZOPHREN [Suspect]
     Dosage: 8MG PER DAY
     Route: 042
     Dates: start: 20060307, end: 20060307
  2. PLITICAN [Suspect]
     Dosage: 50MG PER DAY
     Route: 042
     Dates: start: 20060307, end: 20060307
  3. ELOXATIN [Suspect]
     Indication: BREAST NEOPLASM
     Dosage: 90MG PER DAY
     Route: 042
     Dates: start: 20060307, end: 20060307
  4. SOLU-MEDROL [Suspect]
     Dosage: 60MG PER DAY
     Route: 042
     Dates: start: 20060307, end: 20060307
  5. GEMZAR [Suspect]
     Indication: BREAST NEOPLASM
     Dosage: 1000MG PER DAY
     Route: 042
     Dates: start: 20060307, end: 20060307
  6. SERMION [Concomitant]
     Dosage: 20MG PER DAY
     Route: 048
  7. TRANXENE [Concomitant]
     Dosage: 5MG PER DAY
     Route: 065
  8. DIOVENOR [Concomitant]
     Dosage: 300MG TWICE PER DAY
     Route: 065
  9. LUDIOMIL [Concomitant]
     Dosage: 37.5MG TWICE PER DAY
     Route: 065

REACTIONS (5)
  - ASTHENIA [None]
  - BODY TEMPERATURE INCREASED [None]
  - GENERAL PHYSICAL HEALTH DETERIORATION [None]
  - HYPERGLYCAEMIA [None]
  - THIRST [None]
